FAERS Safety Report 15900143 (Version 1)
Quarter: 2019Q1

REPORT INFORMATION
  Report Type: Spontaneous
  Country: US (occurrence: US)
  Receive Date: 20190201
  Receipt Date: 20190201
  Transmission Date: 20190417
  Serious: No
  Sender: FDA-Public Use
  Company Number: US-BAYER-2019-023302

PATIENT
  Age: 68 Year
  Sex: Female
  Weight: 77 kg

DRUGS (2)
  1. CLARITIN [Suspect]
     Active Substance: LORATADINE
     Indication: HYPERSENSITIVITY
     Dosage: UNK,CUT IN HALF
     Route: 048
     Dates: start: 2019
  2. CLARITIN [Suspect]
     Active Substance: LORATADINE
     Indication: NASOPHARYNGITIS
     Dosage: 1 DF
     Route: 048

REACTIONS (4)
  - Incorrect dose administered [Unknown]
  - Headache [Unknown]
  - Product prescribing error [Unknown]
  - Pruritus [Unknown]

NARRATIVE: CASE EVENT DATE: 20190130
